FAERS Safety Report 5401321-6 (Version None)
Quarter: 2007Q3

REPORT INFORMATION
  Report Type: 
  Country: None (occurrence: None)
  Receive Date: 20070725
  Receipt Date: 20070709
  Transmission Date: 20080115
  Serious: Yes (Other)
  Sender: FDA-Public Use
  Company Number: A03200604258

PATIENT
  Age: 47 Year
  Sex: Male

DRUGS (1)
  1. AMBIEN CR [Suspect]
     Dosage: 12.5 MG HS - ORAL
     Route: 048
     Dates: start: 20060606

REACTIONS (5)
  - ABNORMAL BEHAVIOUR [None]
  - AMNESIA [None]
  - IMPAIRED DRIVING ABILITY [None]
  - IMPRISONMENT [None]
  - ROAD TRAFFIC ACCIDENT [None]
